FAERS Safety Report 6934158-7 (Version None)
Quarter: 2010Q3

REPORT INFORMATION
  Report Type: 
  Country: None (occurrence: None)
  Receive Date: 20100820
  Receipt Date: 20100813
  Transmission Date: 20110219
  Serious: Yes (Other)
  Sender: FDA-Public Use
  Company Number: BR-SANOFI-AVENTIS-2010SA048495

PATIENT
  Age: 29 Year
  Sex: Male
  Weight: 89 kg

DRUGS (9)
  1. LANTUS [Suspect]
     Indication: TYPE 1 DIABETES MELLITUS
     Dosage: AM
     Route: 058
  2. LANTUS [Suspect]
     Dosage: PM
     Route: 058
  3. OPTIPEN [Suspect]
  4. AUTOPEN 24 [Suspect]
  5. HUMALOG [Concomitant]
     Indication: TYPE 1 DIABETES MELLITUS
     Route: 058
  6. METFORMIN [Concomitant]
     Indication: TYPE 1 DIABETES MELLITUS
     Route: 048
  7. VASLIP [Concomitant]
     Route: 048
  8. VASLIP [Concomitant]
     Route: 048
  9. ALL OTHER THERAPEUTIC PRODUCTS [Concomitant]

REACTIONS (4)
  - EYE HAEMORRHAGE [None]
  - HYPERGLYCAEMIA [None]
  - INJECTION SITE EXTRAVASATION [None]
  - MACULOPATHY [None]
